FAERS Safety Report 14195947 (Version 1)
Quarter: 2017Q4

REPORT INFORMATION
  Report Type: Spontaneous
  Country: US (occurrence: None)
  Receive Date: 20171116
  Receipt Date: 20171116
  Transmission Date: 20180321
  Serious: Yes (Other)
  Sender: FDA-Public Use
  Company Number: None

PATIENT
  Age: 42 Year
  Sex: Female
  Weight: 68.04 kg

DRUGS (1)
  1. BUPRENORPHINE/NALOXONE 8/2MG [Suspect]
     Active Substance: BUPRENORPHINE HYDROCHLORIDE\NALOXONE HYDROCHLORIDE
     Indication: DRUG DEPENDENCE
     Dosage: DOSE - 8/2 MG?ROUTE - UNDER THE TONGUE BY MOUTH
     Route: 060
     Dates: start: 20171028, end: 20171030

REACTIONS (2)
  - Drug dependence [None]
  - Fear [None]

NARRATIVE: CASE EVENT DATE: 20171028
